FAERS Safety Report 9122641 (Version 2)
Quarter: 2013Q4

REPORT INFORMATION
  Report Type: Spontaneous
  Country: US (occurrence: US)
  Receive Date: 20130115
  Receipt Date: 20131223
  Transmission Date: 20140711
  Serious: Yes (Hospitalization)
  Sender: FDA-Public Use
  Company Number: US-009507513-1301USA005266

PATIENT
  Sex: Female
  Weight: 102.4 kg

DRUGS (1)
  1. NUVARING [Suspect]
     Indication: CONTRACEPTION
     Dosage: UNK
     Route: 067
     Dates: start: 20040824, end: 20060705

REACTIONS (21)
  - Coagulopathy [Unknown]
  - Deep vein thrombosis [Unknown]
  - Cellulitis [Unknown]
  - Laceration [Unknown]
  - Headache [Unknown]
  - Seasonal allergy [Unknown]
  - Urinary tract infection [Unknown]
  - Dizziness [Unknown]
  - Oropharyngeal pain [Unknown]
  - Ear pain [Unknown]
  - Fatigue [Unknown]
  - Diarrhoea [Unknown]
  - Nausea [Unknown]
  - Vomiting [Unknown]
  - Arthropod bite [Unknown]
  - Thrombophlebitis [Unknown]
  - Rhinitis allergic [Unknown]
  - Smear cervix abnormal [Unknown]
  - Vaginal haemorrhage [Unknown]
  - Maternal exposure before pregnancy [Unknown]
  - Pregnancy with contraceptive device [Unknown]
